FAERS Safety Report 8988181 (Version 2)
Quarter: 2012Q4

REPORT INFORMATION
  Report Type: 
  Country: ES (occurrence: ES)
  Receive Date: 20121227
  Receipt Date: 20121231
  Transmission Date: 20130627
  Serious: Yes (Death, Other)
  Sender: FDA-Public Use
  Company Number: ES-JNJFOC-20121206353

PATIENT
  Age: 76 Year
  Sex: Male

DRUGS (4)
  1. XEPLION [Suspect]
     Indication: PRODUCT USED FOR UNKNOWN INDICATION
     Route: 030
     Dates: start: 20120727, end: 201210
  2. SEROQUEL PROLONG [Suspect]
     Indication: PRODUCT USED FOR UNKNOWN INDICATION
     Route: 048
     Dates: start: 20120727, end: 20121017
  3. QUETIAPINE [Suspect]
     Indication: PRODUCT USED FOR UNKNOWN INDICATION
     Route: 048
     Dates: end: 20121017
  4. UNKNOWN MULTIPLE MEDICATION [Concomitant]
     Route: 065

REACTIONS (4)
  - Encephalopathy [Fatal]
  - Brain hypoxia [Fatal]
  - Convulsion [Unknown]
  - Off label use [Unknown]
